FAERS Safety Report 8189897-X (Version None)
Quarter: 2012Q1

REPORT INFORMATION
  Report Type: 
  Country: None (occurrence: None)
  Receive Date: 20120305
  Receipt Date: 20120221
  Transmission Date: 20120608
  Serious: Yes (Life-Threatening, Hospitalization)
  Sender: FDA-Public Use
  Company Number: 2009AL006122

PATIENT
  Age: 78 Year
  Sex: Male

DRUGS (14)
  1. RAMIPRIL [Suspect]
     Indication: HYPERTENSION
     Dosage: 2.5 MG;QD;PO
     Route: 048
     Dates: end: 20090909
  2. SPIRONOLACTONE [Concomitant]
     Indication: ALCOHOLIC LIVER DISEASE
     Dosage: 100 MG;QID;PO
     Route: 048
     Dates: end: 20090909
  3. PROPRANOLOL [Concomitant]
  4. NOVOMIX [Concomitant]
  5. ISOSORBIDE MONONITRATE [Concomitant]
  6. NITROGLYCERIN [Concomitant]
  7. SULFATRIM [Suspect]
     Indication: PERITONITIS BACTERIAL
     Dosage: 1960 MG;PO
     Route: 048
     Dates: start: 20090820, end: 20090909
  8. LACTULOSE [Concomitant]
  9. SUCRALFATE [Concomitant]
  10. TAMSULOSIN HCL [Concomitant]
  11. ALLOPURINOL [Concomitant]
  12. ACETYLSALICYLIC ACID SRT [Concomitant]
  13. THIAMINE HCL [Concomitant]
  14. LANSOPRAZOLE [Concomitant]

REACTIONS (2)
  - DRUG INTERACTION [None]
  - HYPERKALAEMIA [None]
